FAERS Safety Report 19983351 (Version 1)
Quarter: 2021Q4

REPORT INFORMATION
  Report Type: Spontaneous
  Country: JP (occurrence: JP)
  Receive Date: 20211022
  Receipt Date: 20211022
  Transmission Date: 20220303
  Serious: Yes (Hospitalization)
  Sender: FDA-Public Use
  Company Number: JP-PFIZER INC-202101362368

PATIENT
  Age: 3 Decade
  Sex: Female

DRUGS (5)
  1. AMLODIPINE BESYLATE [Suspect]
     Active Substance: AMLODIPINE BESYLATE
     Dosage: 5 MG (2 TABLETS)
  2. FLECAINIDE ACETATE [Suspect]
     Active Substance: FLECAINIDE ACETATE
     Dosage: 100 MG (2 TABLETS)
  3. PROPRANOLOL [Suspect]
     Active Substance: PROPRANOLOL HYDROCHLORIDE
     Dosage: 20 MG (2 TABLETS)
  4. OLMESARTAN [Suspect]
     Active Substance: OLMESARTAN
     Dosage: 40 MG (2 TABLETS)
  5. AZELNIDIPINE [Suspect]
     Active Substance: AZELNIDIPINE
     Dosage: 32 MG (2 TABLETS)

REACTIONS (6)
  - Bradycardia [Recovered/Resolved]
  - Hypotension [Recovered/Resolved]
  - Toxicity to various agents [Recovered/Resolved]
  - Drug dependence [Recovered/Resolved]
  - Overdose [Recovered/Resolved]
  - Prescription drug used without a prescription [Recovered/Resolved]
